FAERS Safety Report 24641891 (Version 1)
Quarter: 2024Q4

REPORT INFORMATION
  Report Type: Spontaneous
  Country: US (occurrence: None)
  Receive Date: 20241120
  Receipt Date: 20241120
  Transmission Date: 20250115
  Serious: Yes (Hospitalization)
  Sender: Public
  Company Number: None

PATIENT
  Sex: Male
  Weight: 70.31 kg

DRUGS (4)
  1. WINREVAIR [Suspect]
     Active Substance: SOTATERCEPT-CSRK
     Dosage: FREQUENCY : EVERY THREE WEEKS;?
     Dates: start: 202407
  2. AMBRISENTAN [Concomitant]
  3. TREPROSTINIL MDV [Concomitant]
  4. TADALAFIL [Concomitant]

REACTIONS (2)
  - Product use issue [None]
  - Hospitalisation [None]
